FAERS Safety Report 8520751 (Version 4)
Quarter: 2013Q4

REPORT INFORMATION
  Report Type: Spontaneous
  Country: US (occurrence: US)
  Receive Date: 20120418
  Receipt Date: 20131129
  Transmission Date: 20140711
  Serious: Yes (Hospitalization)
  Sender: FDA-Public Use
  Company Number: US-ASTRAZENECA-2011SE41580

PATIENT
  Age: 24698 Day
  Sex: Male
  Weight: 86.2 kg

DRUGS (22)
  1. NEXIUM [Suspect]
     Indication: GASTROOESOPHAGEAL REFLUX DISEASE
     Route: 048
     Dates: start: 2000
  2. NEXIUM [Suspect]
     Indication: GASTROOESOPHAGEAL REFLUX DISEASE
     Route: 048
     Dates: start: 2006, end: 2011
  3. NEXIUM [Suspect]
     Indication: GASTROOESOPHAGEAL REFLUX DISEASE
     Dosage: ONCE A DAY
     Route: 048
     Dates: start: 2006, end: 201107
  4. NEXIUM [Suspect]
     Indication: GASTROOESOPHAGEAL REFLUX DISEASE
     Route: 048
     Dates: start: 2007, end: 2012
  5. NEXIUM [Suspect]
     Indication: GASTROOESOPHAGEAL REFLUX DISEASE
     Route: 048
     Dates: start: 20120212
  6. TUMS [Concomitant]
     Indication: DYSPEPSIA
  7. LITMIUM [Concomitant]
  8. FINESTERIDE [Concomitant]
  9. CELEBREX [Concomitant]
     Indication: ARTHRITIS
  10. LITHIUM [Concomitant]
     Indication: BIPOLAR DISORDER
  11. SYNTHROID [Concomitant]
     Indication: THYROID DISORDER
  12. HYDROCODONE [Concomitant]
     Dates: start: 20130313
  13. LEVOTHYROXINE SODIUM [Concomitant]
     Dates: start: 20130313
  14. LEVOTHYROXINE SODIUM [Concomitant]
     Route: 048
     Dates: start: 20130515
  15. LITHIUM CARBONATE [Concomitant]
     Route: 048
     Dates: start: 20130515
  16. PROPRANOLOL HCL [Concomitant]
     Route: 048
     Dates: start: 20130515
  17. ROPINIROLE HYDROCHLORIDE [Concomitant]
     Route: 048
     Dates: start: 20130515
  18. ROSUVASTATIN CALCIUM [Concomitant]
     Route: 048
     Dates: start: 20130515
  19. SILDENAFIL CITRATE [Concomitant]
     Route: 048
     Dates: start: 20130515
  20. SUMATRIPTAN SUCCINATE [Concomitant]
     Route: 048
     Dates: start: 20130515
  21. TADALAFIL [Concomitant]
     Indication: ERECTILE DYSFUNCTION
     Route: 048
     Dates: start: 20130515
  22. TAMSULOSIN HCL [Concomitant]
     Route: 048
     Dates: start: 20130515

REACTIONS (11)
  - Fibula fracture [Unknown]
  - Tibia fracture [Unknown]
  - Osteoporosis [Unknown]
  - Panic attack [Unknown]
  - Multiple fractures [Unknown]
  - Arthritis [Unknown]
  - Glaucoma [Unknown]
  - Hypothyroidism [Unknown]
  - Androgen deficiency [Unknown]
  - Vitamin D deficiency [Unknown]
  - Depression [Unknown]
